FAERS Safety Report 6447273-1 (Version None)
Quarter: 2009Q4

REPORT INFORMATION
  Report Type: 
  Country: None (occurrence: None)
  Receive Date: 20091119
  Receipt Date: 20081209
  Transmission Date: 20100525
  Serious: Yes (Other)
  Sender: FDA-Public Use
  Company Number: PHHY2008BR34128

PATIENT
  Sex: Female
  Weight: 75 kg

DRUGS (1)
  1. ACLASTA [Suspect]
     Indication: OSTEOPOROSIS
     Dosage: UNK
     Route: 042

REACTIONS (3)
  - ASTHENIA [None]
  - IRON DEFICIENCY [None]
  - TYPE IV HYPERSENSITIVITY REACTION [None]
